FAERS Safety Report 15976087 (Version 1)
Quarter: 2019Q1

REPORT INFORMATION
  Report Type: Spontaneous
  Country: KR (occurrence: KR)
  Receive Date: 20190218
  Receipt Date: 20190218
  Transmission Date: 20190418
  Serious: Yes (Other)
  Sender: FDA-Public Use
  Company Number: KR-SA-2019SA041957

PATIENT
  Age: 43 Year
  Sex: Female

DRUGS (1)
  1. DOCETAXEL. [Suspect]
     Active Substance: DOCETAXEL
     Indication: GASTRIC CANCER
     Dosage: 360 MG, THREE COURSE

REACTIONS (3)
  - Staphylococcal infection [Unknown]
  - Onycholysis [Recovered/Resolved]
  - Abscess limb [Recovered/Resolved]
